FAERS Safety Report 5332147-X (Version None)
Quarter: 2007Q2

REPORT INFORMATION
  Report Type: 
  Country: None (occurrence: None)
  Receive Date: 20070518
  Receipt Date: 20070510
  Transmission Date: 20071010
  Serious: Yes (Hospitalization, Other)
  Sender: FDA-Public Use
  Company Number: 2007SP007911

PATIENT
  Age: 45 Year
  Sex: Female
  Weight: 55.3388 kg

DRUGS (14)
  1. PEG-INTRON [Suspect]
     Indication: HEPATITIS C
     Dosage: SEE IMAGE
     Dates: start: 20030601, end: 20030903
  2. PEG-INTRON [Suspect]
     Indication: HEPATITIS C
     Dosage: SEE IMAGE
     Dates: start: 20030903, end: 20030928
  3. PEG-INTRON [Suspect]
     Indication: HEPATITIS C
     Dosage: SEE IMAGE
     Dates: start: 20070222
  4. REBETOL [Suspect]
     Indication: HEPATITIS C
     Dosage: 400 MG;BID;PO
     Route: 048
     Dates: start: 20030601, end: 20040425
  5. REBETOL [Suspect]
     Indication: HEPATITIS C
     Dosage: 400 MG;BID;PO
     Route: 048
     Dates: start: 20070222
  6. PEGASYS [Suspect]
     Indication: HEPATITIS D
     Dosage: 180 MCG;QW;SC
     Route: 058
     Dates: start: 20030928, end: 20040425
  7. ZOLOFT [Concomitant]
  8. TRAZODONE HCL [Concomitant]
  9. PREVACID [Concomitant]
  10. VICODIN [Concomitant]
  11. SOMA [Concomitant]
  12. M.V.I. [Concomitant]
  13. SEROQUEL [Concomitant]
  14. OXYCONTIN [Concomitant]

REACTIONS (31)
  - ABDOMINAL PAIN LOWER [None]
  - ABDOMINAL RIGIDITY [None]
  - ARTHRALGIA [None]
  - BLOOD ALBUMIN DECREASED [None]
  - BLOOD CALCIUM DECREASED [None]
  - BLOOD CREATINE DECREASED [None]
  - BLOOD PRESSURE ORTHOSTATIC [None]
  - BLOOD UREA DECREASED [None]
  - CHILLS [None]
  - COMPUTERISED TOMOGRAM ABNORMAL [None]
  - DEHYDRATION [None]
  - DIARRHOEA [None]
  - DRY SKIN [None]
  - FLATULENCE [None]
  - HAEMOGLOBIN DECREASED [None]
  - HEADACHE [None]
  - HEPATIC ENZYME DECREASED [None]
  - HYPOKALAEMIA [None]
  - HYPOVOLAEMIA [None]
  - ILL-DEFINED DISORDER [None]
  - INFLUENZA LIKE ILLNESS [None]
  - INTESTINAL OBSTRUCTION [None]
  - MIGRAINE [None]
  - MYALGIA [None]
  - NAUSEA [None]
  - OVERDOSE [None]
  - PAIN [None]
  - PROTEIN TOTAL DECREASED [None]
  - VOMITING [None]
  - WEIGHT DECREASED [None]
  - WHITE BLOOD CELL COUNT DECREASED [None]
